FAERS Safety Report 22057959 (Version 19)
Quarter: 2025Q1

REPORT INFORMATION
  Report Type: Report from Study
  Country: CO (occurrence: CO)
  Receive Date: 20230303
  Receipt Date: 20250313
  Transmission Date: 20250408
  Serious: Yes (Other)
  Sender: TAKEDA
  Company Number: CO-TAKEDA-2023TUS018632

PATIENT
  Age: 33 Year
  Sex: Female
  Weight: 52.3 kg

DRUGS (3)
  1. VEDOLIZUMAB [Suspect]
     Active Substance: VEDOLIZUMAB
     Indication: Colitis ulcerative
  2. VEDOLIZUMAB [Suspect]
     Active Substance: VEDOLIZUMAB
     Dosage: 300 MILLIGRAM, Q4WEEKS
  3. VEDOLIZUMAB [Suspect]
     Active Substance: VEDOLIZUMAB

REACTIONS (25)
  - Diarrhoea haemorrhagic [Not Recovered/Not Resolved]
  - Melaena [Unknown]
  - Exercise tolerance decreased [Unknown]
  - Arthralgia [Unknown]
  - Fatigue [Unknown]
  - Insomnia [Unknown]
  - Treatment failure [Unknown]
  - Anxiety [Unknown]
  - Rhinitis [Unknown]
  - Defaecation urgency [Unknown]
  - Influenza [Unknown]
  - Treatment noncompliance [Unknown]
  - Mucous stools [Unknown]
  - Frequent bowel movements [Unknown]
  - Malaise [Not Recovered/Not Resolved]
  - Weight decreased [Not Recovered/Not Resolved]
  - Weight increased [Not Recovered/Not Resolved]
  - Abdominal discomfort [Unknown]
  - Alopecia [Unknown]
  - Heavy menstrual bleeding [Unknown]
  - Dysmenorrhoea [Unknown]
  - Diarrhoea [Unknown]
  - Abdominal pain [Unknown]
  - Flatulence [Unknown]
  - Nausea [Unknown]

NARRATIVE: CASE EVENT DATE: 20230329
